FAERS Safety Report 22518403 (Version 1)
Quarter: 2023Q2

REPORT INFORMATION
  Report Type: Spontaneous
  Country: US (occurrence: US)
  Receive Date: 20230605
  Receipt Date: 20230605
  Transmission Date: 20230721
  Serious: No
  Sender: FDA-Public Use
  Company Number: US-ELI_LILLY_AND_COMPANY-US202305017621

PATIENT
  Sex: Male
  Weight: 79.819 kg

DRUGS (2)
  1. ADCIRCA [Suspect]
     Active Substance: TADALAFIL
     Indication: Pulmonary arterial hypertension
     Dosage: 20 MG, UNKNOWN
     Route: 048
     Dates: start: 202305
  2. REMODULIN [Suspect]
     Active Substance: TREPROSTINIL
     Indication: Pulmonary arterial hypertension
     Dosage: UNK UNK, OTHER (16 NG/KG/MIN CONTINUOUS)
     Route: 058
     Dates: start: 20230526

REACTIONS (10)
  - Abdominal distension [Unknown]
  - Ascites [Unknown]
  - Cough [Unknown]
  - Nausea [Unknown]
  - Pain in extremity [Unknown]
  - Fatigue [Unknown]
  - Headache [Unknown]
  - Peripheral swelling [Recovering/Resolving]
  - Injection site pain [Unknown]
  - Injection site erythema [Unknown]
